FAERS Safety Report 11876803 (Version 8)
Quarter: 2016Q2

REPORT INFORMATION
  Report Type: Spontaneous
  Country: JP (occurrence: JP)
  Receive Date: 20151229
  Receipt Date: 20160419
  Transmission Date: 20160815
  Serious: Yes (Other)
  Sender: FDA-Public Use
  Company Number: JP-TEVA-621540ISR

PATIENT
  Age: 78 Year
  Sex: Male

DRUGS (10)
  1. VITAMEDIN [Concomitant]
     Active Substance: CYANOCOBALAMIN\PYRIDOXINE HYDROCHLORIDE\THIAMINE
  2. PROEMEND [Concomitant]
     Active Substance: FOSAPREPITANT
  3. LASIX [Concomitant]
     Active Substance: FUROSEMIDE
  4. FLUOROURACIL. [Interacting]
     Active Substance: FLUOROURACIL
     Indication: OESOPHAGEAL CARCINOMA
     Dosage: 800 MG/M2, DAYS 1-5
     Route: 065
     Dates: start: 201204
  5. FENTANYL TRANSDERMAL SYSTEM [Concomitant]
     Active Substance: FENTANYL
  6. DECADRON [Concomitant]
     Active Substance: DEXAMETHASONE
  7. GRANISETRON [Concomitant]
     Active Substance: GRANISETRON
  8. FRANDOL [Concomitant]
     Active Substance: ISOSORBIDE DINITRATE
  9. SOLDEM 3A [Concomitant]
     Active Substance: CARBOHYDRATES\POTASSIUM CHLORIDE\SODIUM CHLORIDE\SODIUM LACTATE
  10. CISPLATIN. [Suspect]
     Active Substance: CISPLATIN
     Indication: OESOPHAGEAL CARCINOMA
     Dosage: 80 MG/M2 DAY 1
     Route: 065
     Dates: start: 201204

REACTIONS (2)
  - Bradycardia [Recovered/Resolved]
  - Drug interaction [Recovered/Resolved]

NARRATIVE: CASE EVENT DATE: 2012
